FAERS Safety Report 22020495 (Version 4)
Quarter: 2023Q2

REPORT INFORMATION
  Report Type: Spontaneous
  Country: FI (occurrence: FI)
  Receive Date: 20230222
  Receipt Date: 20230512
  Transmission Date: 20230721
  Serious: Yes (Other)
  Sender: FDA-Public Use
  Company Number: FI-SANOFI-01494767

PATIENT
  Age: 75 Year
  Sex: Male

DRUGS (2)
  1. TOUJEO [Suspect]
     Active Substance: INSULIN GLARGINE
     Indication: Type 2 diabetes mellitus
     Dosage: 140 U, QD
  2. LINAGLIPTIN [Concomitant]
     Active Substance: LINAGLIPTIN
     Indication: Diabetes mellitus
     Dosage: UNK

REACTIONS (9)
  - Glaucoma [Unknown]
  - Visual impairment [Unknown]
  - Pain [Unknown]
  - COVID-19 [Unknown]
  - Parosmia [Unknown]
  - Injection site pain [Unknown]
  - Cataract operation [Unknown]
  - Hypoglycaemia [Unknown]
  - Intentional product misuse [Unknown]
